FAERS Safety Report 9902740 (Version 1)
Quarter: 2014Q1

REPORT INFORMATION
  Report Type: Report from Study
  Country: CA (occurrence: CA)
  Receive Date: 20140217
  Receipt Date: 20140217
  Transmission Date: 20141002
  Serious: Yes (Hospitalization)
  Sender: FDA-Public Use
  Company Number: CA-JNJFOC-20140208051

PATIENT
  Age: 25 Year
  Sex: Female
  Weight: 82.6 kg

DRUGS (1)
  1. REMICADE [Suspect]
     Indication: CROHN^S DISEASE
     Route: 042
     Dates: start: 20120921, end: 20130815

REACTIONS (3)
  - Kidney infection [Unknown]
  - Abdominal pain upper [Unknown]
  - Diarrhoea [Unknown]
